FAERS Safety Report 4397621-1 (Version None)
Quarter: 2004Q3

REPORT INFORMATION
  Report Type: 
  Country: None (occurrence: None)
  Receive Date: 20040714
  Receipt Date: 20040709
  Transmission Date: 20050211
  Serious: Yes (Other)
  Sender: FDA-Public Use
  Company Number: 001954

PATIENT
  Age: 69 Year
  Sex: Female

DRUGS (4)
  1. MEDROXYPROGESTERONE ACETATE [Suspect]
     Dates: start: 19860301, end: 19890524
  2. PREMARIN [Suspect]
     Dates: start: 19860301, end: 19890524
  3. PROVERA [Suspect]
     Dates: start: 19860301, end: 19890524
  4. ESTRACE [Suspect]
     Dates: start: 19890524, end: 19980311

REACTIONS (1)
  - BREAST CANCER FEMALE [None]
